FAERS Safety Report 4882678-1 (Version None)
Quarter: 2005Q4

REPORT INFORMATION
  Report Type: 
  Country: None (occurrence: None)
  Receive Date: 20051201
  Receipt Date: 20050930
  Transmission Date: 20060501
  Serious: No
  Sender: FDA-Public Use
  Company Number: 2005PV002703

PATIENT
  Age: 53 Year
  Sex: Female
  Weight: 77.1115 kg

DRUGS (9)
  1. BYETTA [Suspect]
     Indication: DIABETES MELLITUS NON-INSULIN-DEPENDENT
     Dosage: 5 MCG; BID; SC
     Route: 058
     Dates: start: 20050930
  2. GLIPIZIDE [Concomitant]
  3. AMARYL [Concomitant]
  4. HYDROCHLOROTHIAZIDE [Concomitant]
  5. CRESTOR [Concomitant]
  6. ALTACE [Concomitant]
  7. METFORMIN [Concomitant]
  8. MULTIVITAMIN [Concomitant]
  9. MEDROXYPROGESTERONE [Concomitant]

REACTIONS (2)
  - DRUG INEFFECTIVE [None]
  - STRESS [None]
